FAERS Safety Report 9448448 (Version 2)
Quarter: 2013Q3

REPORT INFORMATION
  Report Type: Spontaneous
  Country: KR (occurrence: KR)
  Receive Date: 20130808
  Receipt Date: 20130823
  Transmission Date: 20140515
  Serious: Yes (Death, Hospitalization, Other)
  Sender: FDA-Public Use
  Company Number: KR-ASTRAZENECA-2013SE60995

PATIENT
  Age: 74 Year
  Sex: Male
  Weight: 52 kg

DRUGS (3)
  1. BRILINTA [Suspect]
     Indication: ANGINA UNSTABLE
     Route: 048
     Dates: start: 20130727, end: 20130731
  2. ASPIRIN [Concomitant]
     Indication: ANGINA UNSTABLE
     Route: 048
     Dates: start: 20130726, end: 20130731
  3. HEPARIN [Concomitant]
     Indication: ANGINA UNSTABLE
     Route: 042
     Dates: start: 20130726, end: 20130731

REACTIONS (1)
  - Cerebral haemorrhage [Fatal]
